FAERS Safety Report 11026924 (Version 2)
Quarter: 2015Q2

REPORT INFORMATION
  Report Type: Spontaneous
  Country: US (occurrence: US)
  Receive Date: 20150414
  Receipt Date: 20150525
  Transmission Date: 20150821
  Serious: No
  Sender: FDA-Public Use
  Company Number: US-JNJFOC-20141113222

PATIENT
  Sex: Female
  Weight: 61.24 kg

DRUGS (3)
  1. ORTHO TRI CYCLEN LO [Suspect]
     Active Substance: ETHINYL ESTRADIOL\NORGESTIMATE
     Indication: ACNE
     Dosage: JUN-2014 OR JUL-2014
     Route: 048
     Dates: start: 2014
  2. SPIROLACTONE [Concomitant]
     Active Substance: SPIRONOLACTONE
     Indication: ACNE
     Route: 065
  3. ORTHO TRI CYCLEN LO [Suspect]
     Active Substance: ETHINYL ESTRADIOL\NORGESTIMATE
     Indication: CONTRACEPTION
     Dosage: JUN-2014 OR JUL-2014
     Route: 048
     Dates: start: 2014

REACTIONS (2)
  - Acne [Not Recovered/Not Resolved]
  - Product use issue [Not Recovered/Not Resolved]

NARRATIVE: CASE EVENT DATE: 2014
